FAERS Safety Report 10244810 (Version 1)
Quarter: 2014Q2

REPORT INFORMATION
  Report Type: Spontaneous
  Country: NL (occurrence: NL)
  Receive Date: 20140618
  Receipt Date: 20140618
  Transmission Date: 20141212
  Serious: Yes (Death)
  Sender: FDA-Public Use
  Company Number: NL-AMGEN-NLDSP2012086112

PATIENT
  Age: 83 Year
  Sex: Female

DRUGS (2)
  1. NEULASTA [Suspect]
     Indication: PROPHYLAXIS
     Dosage: 6 MG, 1X2W
     Route: 058
     Dates: start: 20120203
  2. ARANESP [Suspect]
     Indication: ANAEMIA
     Dosage: 300 MCG, 1X2W
     Route: 058
     Dates: start: 20110426, end: 20120227

REACTIONS (1)
  - Death [Fatal]
